FAERS Safety Report 25961812 (Version 1)
Quarter: 2025Q4

REPORT INFORMATION
  Report Type: Spontaneous
  Country: US (occurrence: US)
  Receive Date: 20251027
  Receipt Date: 20251027
  Transmission Date: 20260118
  Serious: Yes (Hospitalization)
  Sender: MYLAN
  Company Number: US-MYLANLABS-2025M1084891

PATIENT
  Age: 45 Year
  Sex: Female
  Weight: 111.6 kg

DRUGS (28)
  1. EFFEXOR XR EXTENDED-RELEASE [Suspect]
     Active Substance: VENLAFAXINE HYDROCHLORIDE
     Indication: Anxiety
     Dosage: 75 MILLIGRAM, QD (ONCE DAILY)
     Route: 048
     Dates: start: 20151019
  2. EFFEXOR XR EXTENDED-RELEASE [Suspect]
     Active Substance: VENLAFAXINE HYDROCHLORIDE
     Indication: Depression
     Dosage: 75 MILLIGRAM, QD (ONCE DAILY)
     Dates: start: 20151019
  3. EFFEXOR XR EXTENDED-RELEASE [Suspect]
     Active Substance: VENLAFAXINE HYDROCHLORIDE
     Dosage: 75 MILLIGRAM, QD (ONCE DAILY)
     Dates: start: 20151019
  4. EFFEXOR XR EXTENDED-RELEASE [Suspect]
     Active Substance: VENLAFAXINE HYDROCHLORIDE
     Dosage: 75 MILLIGRAM, QD (ONCE DAILY)
     Route: 048
     Dates: start: 20151019
  5. EFFEXOR XR EXTENDED-RELEASE [Suspect]
     Active Substance: VENLAFAXINE HYDROCHLORIDE
     Dosage: 75 MILLIGRAM, QD (ONCE DAILY)
     Dates: start: 20160419
  6. EFFEXOR XR EXTENDED-RELEASE [Suspect]
     Active Substance: VENLAFAXINE HYDROCHLORIDE
     Dosage: 75 MILLIGRAM, QD (ONCE DAILY)
     Dates: start: 20160419
  7. EFFEXOR XR EXTENDED-RELEASE [Suspect]
     Active Substance: VENLAFAXINE HYDROCHLORIDE
     Dosage: 75 MILLIGRAM, QD (ONCE DAILY)
     Route: 048
     Dates: start: 20160419
  8. EFFEXOR XR EXTENDED-RELEASE [Suspect]
     Active Substance: VENLAFAXINE HYDROCHLORIDE
     Dosage: 75 MILLIGRAM, QD (ONCE DAILY)
     Route: 048
     Dates: start: 20160419
  9. EFFEXOR XR EXTENDED-RELEASE [Suspect]
     Active Substance: VENLAFAXINE HYDROCHLORIDE
     Dosage: 75 MILLIGRAM, BID (1 EVERY MORNING AND EVENTING)
     Route: 048
     Dates: start: 20241008
  10. EFFEXOR XR EXTENDED-RELEASE [Suspect]
     Active Substance: VENLAFAXINE HYDROCHLORIDE
     Dosage: 75 MILLIGRAM, BID (1 EVERY MORNING AND EVENTING)
     Dates: start: 20241008
  11. EFFEXOR XR EXTENDED-RELEASE [Suspect]
     Active Substance: VENLAFAXINE HYDROCHLORIDE
     Dosage: 75 MILLIGRAM, BID (1 EVERY MORNING AND EVENTING)
     Dates: start: 20241008
  12. EFFEXOR XR EXTENDED-RELEASE [Suspect]
     Active Substance: VENLAFAXINE HYDROCHLORIDE
     Dosage: 75 MILLIGRAM, BID (1 EVERY MORNING AND EVENTING)
     Route: 048
     Dates: start: 20241008
  13. EFFEXOR XR EXTENDED-RELEASE [Suspect]
     Active Substance: VENLAFAXINE HYDROCHLORIDE
     Indication: Anxiety
     Dosage: 112.5 MILLIGRAM, QD (TAKE 3 CAPSULES BY MOUTH ONCE DAILY WITH A MEAL)
     Dates: start: 20150212
  14. EFFEXOR XR EXTENDED-RELEASE [Suspect]
     Active Substance: VENLAFAXINE HYDROCHLORIDE
     Indication: Depression
     Dosage: 112.5 MILLIGRAM, QD (TAKE 3 CAPSULES BY MOUTH ONCE DAILY WITH A MEAL)
     Dates: start: 20150212
  15. EFFEXOR XR EXTENDED-RELEASE [Suspect]
     Active Substance: VENLAFAXINE HYDROCHLORIDE
     Dosage: 112.5 MILLIGRAM, QD (TAKE 3 CAPSULES BY MOUTH ONCE DAILY WITH A MEAL)
     Route: 048
     Dates: start: 20150212
  16. EFFEXOR XR EXTENDED-RELEASE [Suspect]
     Active Substance: VENLAFAXINE HYDROCHLORIDE
     Dosage: 112.5 MILLIGRAM, QD (TAKE 3 CAPSULES BY MOUTH ONCE DAILY WITH A MEAL)
     Route: 048
     Dates: start: 20150212
  17. EFFEXOR XR EXTENDED-RELEASE [Suspect]
     Active Substance: VENLAFAXINE HYDROCHLORIDE
     Dosage: 112.5 MILLIGRAM, QD (TAKE 3 CAPSULES BY MOUTH ONCE DAILY WITH A MEAL)
     Route: 048
     Dates: start: 20150410
  18. EFFEXOR XR EXTENDED-RELEASE [Suspect]
     Active Substance: VENLAFAXINE HYDROCHLORIDE
     Dosage: 112.5 MILLIGRAM, QD (TAKE 3 CAPSULES BY MOUTH ONCE DAILY WITH A MEAL)
     Route: 048
     Dates: start: 20150410
  19. EFFEXOR XR EXTENDED-RELEASE [Suspect]
     Active Substance: VENLAFAXINE HYDROCHLORIDE
     Dosage: 112.5 MILLIGRAM, QD (TAKE 3 CAPSULES BY MOUTH ONCE DAILY WITH A MEAL)
     Dates: start: 20150410
  20. EFFEXOR XR EXTENDED-RELEASE [Suspect]
     Active Substance: VENLAFAXINE HYDROCHLORIDE
     Dosage: 112.5 MILLIGRAM, QD (TAKE 3 CAPSULES BY MOUTH ONCE DAILY WITH A MEAL)
     Dates: start: 20150410
  21. EFFEXOR XR EXTENDED-RELEASE [Suspect]
     Active Substance: VENLAFAXINE HYDROCHLORIDE
     Dosage: 37.5 MILLIGRAM, QD (ONCE DAILY)
     Route: 048
     Dates: start: 20151023
  22. EFFEXOR XR EXTENDED-RELEASE [Suspect]
     Active Substance: VENLAFAXINE HYDROCHLORIDE
     Dosage: 37.5 MILLIGRAM, QD (ONCE DAILY)
     Route: 048
     Dates: start: 20151023
  23. EFFEXOR XR EXTENDED-RELEASE [Suspect]
     Active Substance: VENLAFAXINE HYDROCHLORIDE
     Dosage: 37.5 MILLIGRAM, QD (ONCE DAILY)
     Dates: start: 20151023
  24. EFFEXOR XR EXTENDED-RELEASE [Suspect]
     Active Substance: VENLAFAXINE HYDROCHLORIDE
     Dosage: 37.5 MILLIGRAM, QD (ONCE DAILY)
     Dates: start: 20151023
  25. EFFEXOR XR EXTENDED-RELEASE [Suspect]
     Active Substance: VENLAFAXINE HYDROCHLORIDE
     Dosage: 112.5 MILLIGRAM, QD (TAKE 3 CAPSULES BY MOUTH ONCE DAILY WITH A MEAL)
     Dates: start: 20151023
  26. EFFEXOR XR EXTENDED-RELEASE [Suspect]
     Active Substance: VENLAFAXINE HYDROCHLORIDE
     Dosage: 112.5 MILLIGRAM, QD (TAKE 3 CAPSULES BY MOUTH ONCE DAILY WITH A MEAL)
     Dates: start: 20151023
  27. EFFEXOR XR EXTENDED-RELEASE [Suspect]
     Active Substance: VENLAFAXINE HYDROCHLORIDE
     Dosage: 112.5 MILLIGRAM, QD (TAKE 3 CAPSULES BY MOUTH ONCE DAILY WITH A MEAL)
     Route: 048
     Dates: start: 20151023
  28. EFFEXOR XR EXTENDED-RELEASE [Suspect]
     Active Substance: VENLAFAXINE HYDROCHLORIDE
     Dosage: 112.5 MILLIGRAM, QD (TAKE 3 CAPSULES BY MOUTH ONCE DAILY WITH A MEAL)
     Route: 048
     Dates: start: 20151023

REACTIONS (10)
  - Back pain [Unknown]
  - Arthralgia [Unknown]
  - Lumbar spinal stenosis [Unknown]
  - Intervertebral disc protrusion [Unknown]
  - Anaesthesia [Unknown]
  - Memory impairment [Unknown]
  - Self-injurious ideation [Unknown]
  - Anxiety [Unknown]
  - Disturbance in attention [Unknown]
  - Stress [Unknown]

NARRATIVE: CASE EVENT DATE: 20160628
